FAERS Safety Report 25464453 (Version 1)
Quarter: 2025Q2

REPORT INFORMATION
  Report Type: Spontaneous
  Country: US (occurrence: US)
  Receive Date: 20250621
  Receipt Date: 20250621
  Transmission Date: 20250716
  Serious: Yes (Other)
  Sender: UCB
  Company Number: US-UCBSA-2025036122

PATIENT
  Sex: Female
  Weight: 16.7 kg

DRUGS (10)
  1. KEPPRA [Suspect]
     Active Substance: LEVETIRACETAM
     Indication: Focal dyscognitive seizures
     Dates: start: 20220128
  2. KEPPRA [Suspect]
     Active Substance: LEVETIRACETAM
     Dosage: 150 MILLIGRAM, 2X/DAY (BID)
     Dates: start: 202209
  3. KEPPRA [Suspect]
     Active Substance: LEVETIRACETAM
     Dates: start: 202406
  4. KEPPRA [Suspect]
     Active Substance: LEVETIRACETAM
     Dosage: 100 MILLIGRAM, 2X/DAY (BID)
  5. VIGABATRIN [Concomitant]
     Active Substance: VIGABATRIN
     Indication: Weight increased
     Dosage: 100 MILLIGRAM, 2X/DAY (BID)
     Dates: start: 202107
  6. VIGABATRIN [Concomitant]
     Active Substance: VIGABATRIN
     Dosage: 500 MILLIGRAM, 2X/DAY (BID)
     Dates: start: 20220102
  7. VIGABATRIN [Concomitant]
     Active Substance: VIGABATRIN
     Dosage: 800 MILLIGRAM, 2X/DAY (BID)
  8. CLONIDINE [Concomitant]
     Active Substance: CLONIDINE
     Indication: Insomnia
     Dosage: 0.1 MILLIGRAM, ONCE DAILY (QD)
  9. CLONAZEPAM [Concomitant]
     Active Substance: CLONAZEPAM
     Indication: Seizure
  10. DIASTAT [Concomitant]
     Active Substance: DIAZEPAM
     Indication: Seizure
     Route: 054

REACTIONS (4)
  - Status epilepticus [Unknown]
  - Pneumonia [Unknown]
  - Seizure [Unknown]
  - Aggression [Recovered/Resolved]

NARRATIVE: CASE EVENT DATE: 20220101
